FAERS Safety Report 16163458 (Version 18)
Quarter: 2020Q1

REPORT INFORMATION
  Report Type: Spontaneous
  Country: CZ (occurrence: CZ)
  Receive Date: 20190405
  Receipt Date: 20200210
  Transmission Date: 20200409
  Serious: Yes (Hospitalization, Other)
  Sender: FDA-Public Use
  Company Number: CZ-SA-2019SA083790

PATIENT
  Age: 46 Year
  Sex: Male
  Weight: 80 kg

DRUGS (5)
  1. PRALUENT [Suspect]
     Active Substance: ALIROCUMAB
     Indication: TYPE IIA HYPERLIPIDAEMIA
     Dosage: 75 MG, QOW
     Route: 058
     Dates: start: 20181220, end: 20190307
  2. SORTIS [Concomitant]
     Active Substance: ATORVASTATIN
     Dosage: 10 MG
  3. EZETROL [Concomitant]
     Active Substance: EZETIMIBE
     Dosage: 10 MG
     Route: 048
  4. EZETROL [Concomitant]
     Active Substance: EZETIMIBE
     Dosage: 10 MG, QD, 1-0-0
     Route: 048
     Dates: start: 2014, end: 20190307
  5. SORTIS [Concomitant]
     Active Substance: ATORVASTATIN
     Dosage: 0.5 DF, HS, 0-0-1/2
     Route: 048
     Dates: start: 2014, end: 20190307

REACTIONS (8)
  - Hepatitis [Recovered/Resolved]
  - Blood bilirubin increased [Recovered/Resolved]
  - Hepatic enzyme increased [Recovered/Resolved]
  - Thrombocytopenia [Unknown]
  - Haemangioma of liver [Recovering/Resolving]
  - Hepatic encephalopathy [Recovered/Resolved]
  - Autoimmune hepatitis [Recovering/Resolving]
  - Post procedural complication [Not Recovered/Not Resolved]

NARRATIVE: CASE EVENT DATE: 20190307
